FAERS Safety Report 7425880-7 (Version None)
Quarter: 2011Q2

REPORT INFORMATION
  Report Type: 
  Country: None (occurrence: None)
  Receive Date: 20110420
  Receipt Date: 20110322
  Transmission Date: 20111010
  Serious: No
  Sender: FDA-Public Use
  Company Number: US-MYLANLABS-2011S1006155

PATIENT
  Age: 37 Year
  Sex: Female

DRUGS (2)
  1. LAMOTRIGINE [Suspect]
     Indication: BIPOLAR DISORDER
     Route: 048
     Dates: start: 20110308, end: 20110320
  2. LAMOTRIGINE [Suspect]
     Route: 048
     Dates: start: 20110321

REACTIONS (2)
  - PRURITUS [None]
  - RASH GENERALISED [None]
